FAERS Safety Report 5726412-1 (Version None)
Quarter: 2008Q2

REPORT INFORMATION
  Report Type: 
  Country: None (occurrence: None)
  Receive Date: 20080502
  Receipt Date: 20080429
  Transmission Date: 20081010
  Serious: Yes (Other)
  Sender: FDA-Public Use
  Company Number: A0722377A

PATIENT
  Age: 16 Year
  Sex: Male

DRUGS (4)
  1. VALTREX [Suspect]
     Indication: HERPES VIRUS INFECTION
     Dosage: 1000MG TWICE PER DAY
     Route: 048
     Dates: start: 20080401, end: 20080402
  2. PERCOCET [Concomitant]
     Dates: start: 20080206
  3. ZYRTEC [Concomitant]
  4. FAMVIR [Concomitant]
     Dosage: 500MG THREE TIMES PER DAY
     Dates: start: 20080325

REACTIONS (3)
  - AGGRESSION [None]
  - CONFUSIONAL STATE [None]
  - MOOD ALTERED [None]
